FAERS Safety Report 8054108-2 (Version None)
Quarter: 2012Q1

REPORT INFORMATION
  Report Type: 
  Country: None (occurrence: None)
  Receive Date: 20120118
  Receipt Date: 20120111
  Transmission Date: 20120608
  Serious: Yes (Hospitalization)
  Sender: FDA-Public Use
  Company Number: IE-B.I. PHARMACEUTICALS,INC./RIDGEFIELD-2012-UK-00037UK

PATIENT
  Age: 77 Year
  Sex: Female

DRUGS (3)
  1. ADACAN [Concomitant]
  2. PRADAXA [Suspect]
     Dosage: 220 MG
  3. LIPITOR [Concomitant]

REACTIONS (1)
  - CEREBROVASCULAR ACCIDENT [None]
